FAERS Safety Report 17525489 (Version 1)
Quarter: 2020Q1

REPORT INFORMATION
  Report Type: Spontaneous
  Country: US (occurrence: US)
  Receive Date: 20200311
  Receipt Date: 20200311
  Transmission Date: 20200409
  Serious: Yes (Other)
  Sender: FDA-Public Use
  Company Number: US-ALKEM LABORATORIES LIMITED-US-ALKEM-2020-00555

PATIENT
  Age: 18 Year
  Sex: Female

DRUGS (11)
  1. QUETIAPINE FUMARATE. [Suspect]
     Active Substance: QUETIAPINE FUMARATE
     Indication: GENERALISED ANXIETY DISORDER
     Dosage: 25 MILLIGRAM, QD, (AT BEDTIME)
     Route: 065
  2. FLUOXETINE [Interacting]
     Active Substance: FLUOXETINE HYDROCHLORIDE
     Indication: DEPRESSIVE SYMPTOM
     Dosage: 15 MILLIGRAM, QD,  (EVERY MORNING)
     Route: 065
  3. SERTRALINE [Suspect]
     Active Substance: SERTRALINE HYDROCHLORIDE
     Indication: GENERALISED ANXIETY DISORDER
     Dosage: 200 MILLIGRAM, OD
     Route: 065
  4. FLUOXETINE [Interacting]
     Active Substance: FLUOXETINE HYDROCHLORIDE
     Dosage: 10 MILLIGRAM, QD, (EVERY MORNING)
     Route: 065
  5. LISDEXAMFETAMINE [Interacting]
     Active Substance: LISDEXAMFETAMINE
     Indication: ATTENTION DEFICIT/HYPERACTIVITY DISORDER
  6. SERTRALINE [Suspect]
     Active Substance: SERTRALINE HYDROCHLORIDE
     Indication: ATTENTION DEFICIT/HYPERACTIVITY DISORDER
     Dosage: 100 MILLIGRAM, OD
     Route: 065
  7. FLUOXETINE [Interacting]
     Active Substance: FLUOXETINE HYDROCHLORIDE
     Dosage: 5 MILLIGRAM, QD, (EVERY MORNING)
     Route: 065
  8. QUETIAPINE FUMARATE. [Interacting]
     Active Substance: QUETIAPINE FUMARATE
     Indication: ATTENTION DEFICIT/HYPERACTIVITY DISORDER
  9. FLUOXETINE [Interacting]
     Active Substance: FLUOXETINE HYDROCHLORIDE
     Indication: GENERALISED ANXIETY DISORDER
     Dosage: 20 MILLIGRAM, QD, (EVERY MORNING)
     Route: 065
  10. LISDEXAMFETAMINE [Interacting]
     Active Substance: LISDEXAMFETAMINE
     Indication: GENERALISED ANXIETY DISORDER
     Dosage: 60 MILLIGRAM, QD, (EVERY MORNING)
     Route: 065
  11. SERTRALINE [Suspect]
     Active Substance: SERTRALINE HYDROCHLORIDE
     Indication: DEPRESSIVE SYMPTOM
     Dosage: 150 MILLIGRAM, OD
     Route: 065

REACTIONS (2)
  - Drug interaction [Unknown]
  - Serotonin syndrome [Recovering/Resolving]
